FAERS Safety Report 20106817 (Version 1)
Quarter: 2021Q4

REPORT INFORMATION
  Report Type: Report from Study
  Country: AU (occurrence: AU)
  Receive Date: 20211124
  Receipt Date: 20211124
  Transmission Date: 20220303
  Serious: Yes (Death, Hospitalization, Other)
  Sender: FDA-Public Use
  Company Number: AU-NOVARTISPH-NVSC2021AU236492

PATIENT
  Age: 61 Year
  Sex: Male
  Weight: 75 kg

DRUGS (7)
  1. ASCIMINIB [Suspect]
     Active Substance: ASCIMINIB
     Indication: Chronic myeloid leukaemia
     Dosage: 40 MG, BID
     Route: 048
     Dates: start: 20200725, end: 20211008
  2. PREDNISOLONE [Concomitant]
     Active Substance: PREDNISOLONE
     Indication: Product used for unknown indication
     Dosage: 05 MG
     Route: 048
  3. APIXABAN [Concomitant]
     Active Substance: APIXABAN
     Indication: Product used for unknown indication
     Dosage: 5 MG
     Route: 048
  4. ALLOPURINOL [Concomitant]
     Active Substance: ALLOPURINOL
     Indication: Product used for unknown indication
     Dosage: 300 MG
     Route: 048
  5. BISOPROLOL [Concomitant]
     Active Substance: BISOPROLOL
     Indication: Product used for unknown indication
     Dosage: 5 MG
     Route: 048
  6. PANTOPRAZOLE [Concomitant]
     Active Substance: PANTOPRAZOLE
     Indication: Product used for unknown indication
     Dosage: 40 MG
     Route: 048
  7. PREGABALIN [Concomitant]
     Active Substance: PREGABALIN
     Indication: Product used for unknown indication
     Dosage: 25 MG
     Route: 048

REACTIONS (12)
  - SARS-CoV-2 test positive [Fatal]
  - Dyspnoea [Fatal]
  - Cough [Fatal]
  - Blood pressure increased [Fatal]
  - Respiratory failure [Fatal]
  - Respiratory distress [Fatal]
  - Respiratory arrest [Fatal]
  - Oxygen saturation decreased [Fatal]
  - Heart rate increased [Fatal]
  - Sepsis [Unknown]
  - Escherichia test positive [Recovering/Resolving]
  - Serum ferritin decreased [Recovered/Resolved]

NARRATIVE: CASE EVENT DATE: 20210211
